FAERS Safety Report 12428452 (Version 1)
Quarter: 2016Q2

REPORT INFORMATION
  Report Type: Report from Study
  Country: BR (occurrence: BR)
  Receive Date: 20160602
  Receipt Date: 20160602
  Transmission Date: 20160815
  Serious: Yes (Hospitalization)
  Sender: FDA-Public Use
  Company Number: PHHY2016BR069806

PATIENT
  Sex: Female
  Weight: 70 kg

DRUGS (3)
  1. METFORMIN [Concomitant]
     Active Substance: METFORMIN HYDROCHLORIDE
     Indication: PRODUCT USED FOR UNKNOWN INDICATION
     Route: 065
  2. DIOVAN HCT [Suspect]
     Active Substance: HYDROCHLOROTHIAZIDE\VALSARTAN
     Indication: PRODUCT USED FOR UNKNOWN INDICATION
     Dosage: 1 DF,(HYDROCHLOROTHIAZIDE 12.5 OT, VALSARTAN 80 OT) ,UNK
     Route: 048
  3. DIOVAN AMLO [Suspect]
     Active Substance: AMLODIPINE\VALSARTAN
     Indication: HYPERTENSION
     Dosage: 1 DF,(AMLODIPINE BESILATE 5 MG, VALSARTAN 80 MG), QD
     Route: 048

REACTIONS (3)
  - General physical condition abnormal [Unknown]
  - Skin discolouration [Recovered/Resolved]
  - Arrhythmia [Unknown]
